FAERS Safety Report 7641807-7 (Version None)
Quarter: 2011Q3

REPORT INFORMATION
  Report Type: 
  Country: None (occurrence: None)
  Receive Date: 20110728
  Receipt Date: 20110715
  Transmission Date: 20111222
  Serious: Yes (Hospitalization)
  Sender: FDA-Public Use
  Company Number: DE-ROCHE-778245

PATIENT
  Sex: Female
  Weight: 65 kg

DRUGS (2)
  1. AVASTIN [Suspect]
     Route: 042
     Dates: start: 20100504, end: 20110503
  2. XELODA [Concomitant]
     Dosage: DAILY (NOT REPORTED HOW OFTEN)
     Route: 048
     Dates: start: 20090929

REACTIONS (3)
  - ASCITES [None]
  - CHOLELITHIASIS [None]
  - GRAND MAL CONVULSION [None]
